FAERS Safety Report 24003007 (Version 1)
Quarter: 2024Q2

REPORT INFORMATION
  Report Type: Spontaneous
  Country: US (occurrence: US)
  Receive Date: 20240624
  Receipt Date: 20240624
  Transmission Date: 20240716
  Serious: No
  Sender: FDA-Public Use
  Company Number: US-SA-SAC20240618000162

PATIENT
  Age: 65 Year
  Sex: Female

DRUGS (21)
  1. DUPIXENT [Suspect]
     Active Substance: DUPILUMAB
     Indication: Dermatitis atopic
     Dosage: 600 MG, 1X
     Route: 058
  2. BUPROPION [Concomitant]
     Active Substance: BUPROPION
  3. TRIAMCINOLONE ACETONIDE [Concomitant]
     Active Substance: TRIAMCINOLONE ACETONIDE
  4. CLOBETASOL [Concomitant]
     Active Substance: CLOBETASOL
  5. TACROLIMUS [Concomitant]
     Active Substance: TACROLIMUS
  6. VASCEPA [Concomitant]
     Active Substance: ICOSAPENT ETHYL
  7. VITAMIN D3 [Concomitant]
     Active Substance: CHOLECALCIFEROL
  8. VITAMIN C [Concomitant]
     Active Substance: ASCORBIC ACID
  9. COLLAGEN [Concomitant]
     Active Substance: COLLAGEN
  10. OMEPRAZOLE [Concomitant]
     Active Substance: DONEPEZIL HYDROCHLORIDE\OMEPRAZOLE\OMEPRAZOLE MAGNESIUM
  11. LISINOPRIL [Concomitant]
     Active Substance: LISINOPRIL
  12. ESTRADIOL [Concomitant]
     Active Substance: ESTRADIOL
     Dosage: QW
  13. DULOXETINE HYDROCHLORIDE [Concomitant]
     Active Substance: DULOXETINE HYDROCHLORIDE
  14. CRESTOR [Concomitant]
     Active Substance: ROSUVASTATIN CALCIUM
  15. OXYCODONE [Concomitant]
     Active Substance: OXYCODONE\OXYCODONE HYDROCHLORIDE
  16. HYDROCODONE [Concomitant]
     Active Substance: HYDROCODONE
  17. ZETIA [Concomitant]
     Active Substance: EZETIMIBE
  18. BUDESONIDE [Concomitant]
     Active Substance: BUDESONIDE
  19. ATORVASTATIN [Concomitant]
     Active Substance: ATORVASTATIN
  20. SULFAMETHOXAZOLE [Concomitant]
     Active Substance: SULFAMETHOXAZOLE
  21. OSTEO-BI-FLEX [Concomitant]

REACTIONS (4)
  - Injection site discomfort [Unknown]
  - Injection site pain [Unknown]
  - Dry skin [Unknown]
  - Pruritus [Unknown]

NARRATIVE: CASE EVENT DATE: 20240601
